FAERS Safety Report 7478329-2 (Version None)
Quarter: 2011Q2

REPORT INFORMATION
  Report Type: 
  Country: None (occurrence: None)
  Receive Date: 20110513
  Receipt Date: 20110505
  Transmission Date: 20111010
  Serious: Yes (Hospitalization, Other)
  Sender: FDA-Public Use
  Company Number: US-JNJFOC-20110504380

PATIENT
  Sex: Female
  Weight: 68.04 kg

DRUGS (1)
  1. PROPULSID [Suspect]
     Indication: GASTROOESOPHAGEAL REFLUX DISEASE
     Route: 048

REACTIONS (4)
  - INTRA-UTERINE DEATH [None]
  - CARDIAC DISORDER [None]
  - MYOCARDIAL INFARCTION [None]
  - DRUG EXPOSURE BEFORE PREGNANCY [None]
